FAERS Safety Report 25203041 (Version 1)
Quarter: 2025Q2

REPORT INFORMATION
  Report Type: Spontaneous
  Country: US (occurrence: US)
  Receive Date: 20250416
  Receipt Date: 20250416
  Transmission Date: 20250716
  Serious: Yes (Hospitalization, Other)
  Sender: RANBAXY
  Company Number: US-SUN PHARMACEUTICAL INDUSTRIES LTD-2025R1-502907

PATIENT
  Age: 25 Year
  Sex: Male

DRUGS (3)
  1. LIOTHYRONINE [Suspect]
     Active Substance: LIOTHYRONINE
     Indication: Product used for unknown indication
     Dosage: 200 MICROGRAM PILL, OD
     Route: 065
  2. STANOZOLOL [Suspect]
     Active Substance: STANOZOLOL
     Indication: Performance enhancing product use
     Route: 065
  3. CLENBUTEROL [Suspect]
     Active Substance: CLENBUTEROL
     Indication: Performance enhancing product use
     Route: 065

REACTIONS (3)
  - Hyperthyroidism [Unknown]
  - Cardiac arrest [Unknown]
  - Cardiomyopathy [Unknown]
